FAERS Safety Report 10822147 (Version 5)
Quarter: 2016Q1

REPORT INFORMATION
  Report Type: Report from Study
  Country: US (occurrence: None)
  Receive Date: 20150213
  Receipt Date: 20160210
  Transmission Date: 20160525
  Serious: Yes (Life-Threatening, Hospitalization, Other)
  Sender: FDA-Public Use
  Company Number: ADR-2015-00304

PATIENT
  Age: 57 Year
  Sex: Male

DRUGS (2)
  1. DILAUDID [Suspect]
     Active Substance: HYDROMORPHONE HYDROCHLORIDE
     Indication: CANCER PAIN
     Dosage: 1.2030 MG/DAY
  2. COMPOUNDED BACLOFEN 400 MCG/ML [Suspect]
     Active Substance: BACLOFEN
     Indication: CANCER PAIN
     Dosage: 240.61 MCG/DAY

REACTIONS (12)
  - Back pain [None]
  - Medical device site pain [None]
  - Sepsis [None]
  - Device power source issue [None]
  - Delirium [None]
  - Septic shock [None]
  - Implant site infection [None]
  - Chills [None]
  - Pyrexia [None]
  - Mental status changes [None]
  - Dyspnoea [None]
  - Hypotension [None]
